FAERS Safety Report 7943019-6 (Version None)
Quarter: 2011Q4

REPORT INFORMATION
  Report Type: 
  Country: None (occurrence: None)
  Receive Date: 20111128
  Receipt Date: 20111124
  Transmission Date: 20120403
  Serious: Yes (Hospitalization)
  Sender: FDA-Public Use
  Company Number: FR-BAYER-2011-113731

PATIENT
  Sex: Female

DRUGS (2)
  1. CIPROFLOXACIN [Suspect]
     Dosage: UNK
  2. CIPROFLOXACIN [Suspect]
     Indication: CYSTITIS
     Dosage: UNK
     Dates: start: 20070101

REACTIONS (6)
  - MUSCLE STRAIN [None]
  - BLOOD ALBUMIN DECREASED [None]
  - TENDON DISORDER [None]
  - TENDON INJURY [None]
  - ANAPHYLACTIC SHOCK [None]
  - OEDEMA [None]
